FAERS Safety Report 5161825-0 (Version None)
Quarter: 2006Q4

REPORT INFORMATION
  Report Type: 
  Country: None (occurrence: None)
  Receive Date: 20061130
  Receipt Date: 20060926
  Transmission Date: 20070319
  Serious: No
  Sender: FDA-Public Use
  Company Number: US-GLAXOSMITHKLINE-A0621460A

PATIENT
  Age: 38 Year
  Sex: Female

DRUGS (4)
  1. WELLBUTRIN XL [Suspect]
     Indication: DEPRESSION
     Route: 048
     Dates: start: 20040101
  2. KLONOPIN [Concomitant]
  3. FIORINAL [Concomitant]
  4. ADVIL [Concomitant]

REACTIONS (5)
  - DIZZINESS [None]
  - HEART RATE INCREASED [None]
  - MEDICATION ERROR [None]
  - NERVOUSNESS [None]
  - OVERDOSE [None]
